FAERS Safety Report 9209304 (Version 1)
Quarter: 2013Q1

REPORT INFORMATION
  Report Type: Spontaneous
  Country: US (occurrence: None)
  Receive Date: 20120817
  Receipt Date: 20120817
  Transmission Date: 20140127
  Serious: Yes (Other)
  Sender: FDA-Public Use
  Company Number: ADR-2011-11681

PATIENT
  Age: 37 Year
  Sex: Female

DRUGS (2)
  1. LIORESAL INTRATHECAL (BACLOFEN INJECTION)2000 MCG/ML [Suspect]
     Indication: MUSCLE SPASTICITY
     Dosage: FLEX DOSING
  2. LIORESAL INTRATHECAL (BACLOFEN INJECTION)2000 MCG/ML [Suspect]
     Indication: CEREBRAL PALSY
     Dosage: FLEX DOSING

REACTIONS (4)
  - Therapeutic response decreased [None]
  - Muscle spasticity [None]
  - Drug withdrawal syndrome [None]
  - Pruritus [None]
